FAERS Safety Report 19514690 (Version 2)
Quarter: 2021Q3

REPORT INFORMATION
  Report Type: Spontaneous
  Country: CH (occurrence: CH)
  Receive Date: 20210709
  Receipt Date: 20210715
  Transmission Date: 20211014
  Serious: Yes (Hospitalization)
  Sender: FDA-Public Use
  Company Number: CH-ASTRAZENECA-2021A584966

PATIENT
  Age: 63 Year
  Sex: Male

DRUGS (10)
  1. AGOMELATINE [Concomitant]
     Active Substance: AGOMELATINE
     Indication: DEPRESSION
     Route: 065
     Dates: start: 201912
  2. RIVAROXABAN [Concomitant]
     Active Substance: RIVAROXABAN
     Route: 065
     Dates: start: 201905
  3. SEROQUEL XR [Suspect]
     Active Substance: QUETIAPINE FUMARATE
     Indication: BIPOLAR DISORDER
     Dosage: IN THE EVENING, GRADUALLY INCREASED
     Route: 048
     Dates: start: 20200210
  4. VORTIOXETINE. [Concomitant]
     Active Substance: VORTIOXETINE
     Indication: DEPRESSION
     Route: 065
     Dates: start: 202001
  5. CHLORTALIDONE/AZILSARTAN [Concomitant]
     Dosage: 20/12.5 MG/IN THE MORNING
     Route: 065
     Dates: start: 201905
  6. SEROQUEL [Interacting]
     Active Substance: QUETIAPINE FUMARATE
     Indication: BIPOLAR DISORDER
     Dosage: AT NIGHT, GRADUALLY INCREASED
     Route: 048
     Dates: start: 20200210
  7. SEROQUEL [Interacting]
     Active Substance: QUETIAPINE FUMARATE
     Indication: BIPOLAR DISORDER
     Route: 048
  8. SEROQUEL XR [Interacting]
     Active Substance: QUETIAPINE FUMARATE
     Indication: BIPOLAR DISORDER
     Dosage: 200 MG IN THE EVENING
     Route: 048
  9. EPLERENON [Concomitant]
     Active Substance: EPLERENONE
     Route: 065
     Dates: start: 201905
  10. SEROQUEL XR [Interacting]
     Active Substance: QUETIAPINE FUMARATE
     Indication: BIPOLAR DISORDER
     Dosage: 100 MG IN THE EVENING
     Route: 048

REACTIONS (4)
  - Tremor [Recovered/Resolved]
  - Sedation [Recovered/Resolved]
  - Drug interaction [Unknown]
  - Constipation [Recovered/Resolved]

NARRATIVE: CASE EVENT DATE: 20200212
